FAERS Safety Report 20959157 (Version 2)
Quarter: 2022Q4

REPORT INFORMATION
  Report Type: Spontaneous
  Country: IT (occurrence: IT)
  Receive Date: 20220614
  Receipt Date: 20221216
  Transmission Date: 20230113
  Serious: Yes (Other)
  Sender: FDA-Public Use
  Company Number: IT-SUN PHARMACEUTICAL INDUSTRIES LTD-2022R1-338816

PATIENT
  Age: 69 Year
  Sex: Female

DRUGS (1)
  1. AZACITIDINE [Suspect]
     Active Substance: AZACITIDINE
     Indication: Acute myeloid leukaemia
     Dosage: 50 MILLIGRAM/SQ. METER, QD
     Route: 058

REACTIONS (3)
  - Acute myeloid leukaemia [Recovering/Resolving]
  - Therapeutic response decreased [Unknown]
  - Off label use [Unknown]
